FAERS Safety Report 7435325-9 (Version None)
Quarter: 2011Q2

REPORT INFORMATION
  Report Type: 
  Country: None (occurrence: None)
  Receive Date: 20110425
  Receipt Date: 20110419
  Transmission Date: 20111010
  Serious: Yes (Hospitalization)
  Sender: FDA-Public Use
  Company Number: A0877039A

PATIENT
  Age: 55 Year
  Sex: Female
  Weight: 50.9 kg

DRUGS (7)
  1. INSULIN [Concomitant]
  2. METFORMIN [Concomitant]
  3. OMEPRAZOLE [Concomitant]
  4. GLYBURIDE [Concomitant]
  5. NEURONTIN [Concomitant]
  6. AVANDIA [Suspect]
     Dosage: 8MG PER DAY
     Route: 048
     Dates: start: 20060501, end: 20100101
  7. ZOLOFT [Concomitant]

REACTIONS (4)
  - HYPOAESTHESIA [None]
  - CORONARY ARTERY BYPASS [None]
  - CORONARY ARTERY DISEASE [None]
  - CARDIAC ARREST [None]
